FAERS Safety Report 7686556-4 (Version None)
Quarter: 2011Q3

REPORT INFORMATION
  Report Type: 
  Country: None (occurrence: None)
  Receive Date: 20110816
  Receipt Date: 20110809
  Transmission Date: 20111222
  Serious: Yes (Other)
  Sender: FDA-Public Use
  Company Number: US-MERCK-1108USA01083

PATIENT
  Age: 27 Year
  Sex: Female

DRUGS (3)
  1. ISENTRESS [Suspect]
     Route: 048
     Dates: start: 20101221
  2. VIRAMUNE [Suspect]
     Route: 048
     Dates: start: 20101221
  3. TRUVADA [Suspect]
     Route: 048
     Dates: start: 20101221

REACTIONS (2)
  - MATERNAL EXPOSURE DURING PREGNANCY [None]
  - ABORTION SPONTANEOUS [None]
